FAERS Safety Report 12348312 (Version 1)
Quarter: 2016Q2

REPORT INFORMATION
  Report Type: Spontaneous
  Country: US (occurrence: US)
  Receive Date: 20160509
  Receipt Date: 20160509
  Transmission Date: 20160815
  Serious: No
  Sender: FDA-Public Use
  Company Number: US-BAYER-2016-088299

PATIENT
  Age: 73 Year
  Sex: Female
  Weight: 56.69 kg

DRUGS (3)
  1. MIRALAX [Suspect]
     Active Substance: POLYETHYLENE GLYCOL 3350
     Indication: CONGENITAL INTESTINAL MALFORMATION
     Dosage: 1 DF, BID
     Route: 048
     Dates: start: 2004
  2. MIRALAX [Suspect]
     Active Substance: POLYETHYLENE GLYCOL 3350
     Indication: CONGENITAL INTESTINAL MALFORMATION
     Dosage: 1 DF, BID
     Route: 048
     Dates: start: 2004
  3. MIRALAX [Suspect]
     Active Substance: POLYETHYLENE GLYCOL 3350
     Indication: CONGENITAL INTESTINAL MALFORMATION
     Dosage: 1 DF, BID
     Route: 048
     Dates: start: 2004

REACTIONS (5)
  - Dizziness [None]
  - Off label use [None]
  - Product use issue [None]
  - Product use issue [None]
  - Nausea [None]

NARRATIVE: CASE EVENT DATE: 2004
